FAERS Safety Report 11394104 (Version 1)
Quarter: 2015Q3

REPORT INFORMATION
  Report Type: Spontaneous
  Country: CN (occurrence: CN)
  Receive Date: 20150819
  Receipt Date: 20150819
  Transmission Date: 20151125
  Serious: Yes (Other)
  Sender: FDA-Public Use
  Company Number: PHHY2015CN098460

PATIENT
  Age: 45 Year

DRUGS (1)
  1. TASIGNA [Suspect]
     Active Substance: NILOTINIB
     Indication: CHRONIC MYELOID LEUKAEMIA
     Dosage: UNK
     Route: 048

REACTIONS (6)
  - Liver injury [Unknown]
  - Chromaturia [Unknown]
  - Blood bilirubin increased [Recovered/Resolved]
  - Hepatic cirrhosis [Unknown]
  - Asthenia [Unknown]
  - Ocular icterus [Unknown]
